APPROVED DRUG PRODUCT: FLUOCINOLONE ACETONIDE
Active Ingredient: FLUOCINOLONE ACETONIDE
Strength: 0.025%
Dosage Form/Route: CREAM;TOPICAL
Application: A088756 | Product #001
Applicant: USL PHARMA INC
Approved: Mar 28, 1985 | RLD: No | RS: No | Type: DISCN